FAERS Safety Report 9136062 (Version 1)
Quarter: 2013Q1

REPORT INFORMATION
  Report Type: Spontaneous
  Country: US (occurrence: US)
  Receive Date: 20130304
  Receipt Date: 20130304
  Transmission Date: 20140127
  Serious: No
  Sender: FDA-Public Use
  Company Number: US-ABBOTT-12P-163-1016582-00

PATIENT
  Sex: Male

DRUGS (6)
  1. ANDROGEL 1% [Suspect]
     Indication: BLOOD TESTOSTERONE DECREASED
     Dosage: 3 PUMPS
     Route: 061
     Dates: start: 20110325, end: 20110625
  2. ANDROGEL 1% [Suspect]
     Dosage: 4 PUMPS
     Route: 061
     Dates: start: 20110626
  3. ANDROGEL 1% [Suspect]
     Dosage: 7-8 PUMPS
     Dates: start: 2011
  4. ANDROGEL 1% [Suspect]
     Dosage: 5-6 PUMPS
     Route: 061
     Dates: end: 20110712
  5. ANDROGEL 1% [Suspect]
     Dosage: 5-6 PUMPS
     Route: 061
     Dates: start: 201108, end: 201209
  6. ANDROGEL 1.62% [Suspect]
     Indication: BLOOD TESTOSTERONE DECREASED
     Dosage: 3 PUMPS
     Route: 061
     Dates: start: 20110713, end: 201108

REACTIONS (7)
  - Intervertebral disc protrusion [Unknown]
  - Skin odour abnormal [Recovered/Resolved]
  - Hyperhidrosis [Recovered/Resolved]
  - Cervical radiculopathy [Unknown]
  - Anxiety [Recovered/Resolved]
  - Panic attack [Recovered/Resolved]
  - Blood testosterone increased [Recovered/Resolved]
